FAERS Safety Report 18429538 (Version 1)
Quarter: 2020Q4

REPORT INFORMATION
  Report Type: Report from Study
  Country: US (occurrence: US)
  Receive Date: 20201027
  Receipt Date: 20201027
  Transmission Date: 20210114
  Serious: Yes (Death, Hospitalization, Other)
  Sender: FDA-Public Use
  Company Number: US-VISTAPHARM, INC.-VER202010-001830

PATIENT
  Age: 36 Year
  Sex: Female

DRUGS (4)
  1. FOLATE [Concomitant]
     Active Substance: FOLATE SODIUM
     Dosage: UNKNOWN
  2. HYDROCODONE AND ACETAMINOPHEN [Suspect]
     Active Substance: ACETAMINOPHEN\HYDROCODONE
     Indication: PRODUCT USED FOR UNKNOWN INDICATION
     Dosage: UNKNOWN
  3. FOLATE [Concomitant]
     Active Substance: FOLATE SODIUM
     Indication: PRODUCT USED FOR UNKNOWN INDICATION
     Dosage: UNKNOWN
  4. THIAMINE. [Concomitant]
     Active Substance: THIAMINE
     Indication: PRODUCT USED FOR UNKNOWN INDICATION
     Dosage: UNKNOWN

REACTIONS (12)
  - Toxicity to various agents [Fatal]
  - Anion gap [Unknown]
  - Hepatotoxicity [Unknown]
  - Depressed level of consciousness [Unknown]
  - Coma [Unknown]
  - Hypoglycaemia [Unknown]
  - Delirium [Unknown]
  - Thrombocytopenia [Unknown]
  - Metabolic acidosis [Unknown]
  - Hypotension [Unknown]
  - Acute kidney injury [Unknown]
  - Gastrointestinal haemorrhage [Unknown]
